FAERS Safety Report 21424715 (Version 1)
Quarter: 2022Q4

REPORT INFORMATION
  Report Type: Report from Study
  Country: US (occurrence: US)
  Receive Date: 20221007
  Receipt Date: 20221007
  Transmission Date: 20230113
  Serious: Yes (Death)
  Sender: FDA-Public Use
  Company Number: US-ABBVIE-4144879

PATIENT
  Age: 91 Year
  Sex: Female

DRUGS (1)
  1. VENCLEXTA [Suspect]
     Active Substance: VENETOCLAX
     Indication: Waldenstrom^s macroglobulinaemia
     Route: 048
     Dates: start: 202203, end: 202210

REACTIONS (1)
  - Death [Fatal]

NARRATIVE: CASE EVENT DATE: 20221001
